FAERS Safety Report 7504418-X (Version None)
Quarter: 2011Q2

REPORT INFORMATION
  Report Type: 
  Country: None (occurrence: None)
  Receive Date: 20110525
  Receipt Date: 20110511
  Transmission Date: 20111010
  Serious: No
  Sender: FDA-Public Use
  Company Number: US-B.I. PHARMACEUTICALS,INC./RIDGEFIELD-2011-BP-12803BP

PATIENT
  Age: 88 Year
  Sex: Female

DRUGS (9)
  1. SPIRIVA [Suspect]
     Indication: CHRONIC OBSTRUCTIVE PULMONARY DISEASE
     Dosage: 18 MCG
     Route: 055
     Dates: start: 20070101
  2. CARVEDILOL [Concomitant]
     Indication: HYPERTENSION
  3. VITAMIN D [Concomitant]
     Indication: ROUTINE HEALTH MAINTENANCE
  4. AMLODIPINE [Concomitant]
     Indication: HYPERTENSION
  5. RAMIPRIL [Concomitant]
     Indication: HYPERTENSION
  6. PLAVIX [Concomitant]
     Indication: HYPERTENSION
  7. SIMVASTATIN [Concomitant]
     Indication: BLOOD CHOLESTEROL INCREASED
  8. SYNTHROID [Concomitant]
     Indication: HYPOTHYROIDISM
  9. ASPIRIN [Concomitant]
     Indication: ROUTINE HEALTH MAINTENANCE

REACTIONS (2)
  - DRY MOUTH [None]
  - AGEUSIA [None]
